FAERS Safety Report 7414541-6 (Version None)
Quarter: 2011Q2

REPORT INFORMATION
  Report Type: 
  Country: None (occurrence: None)
  Receive Date: 20110411
  Receipt Date: 20110411
  Transmission Date: 20111010
  Serious: Yes (Hospitalization, Disabling)
  Sender: FDA-Public Use
  Company Number: None

PATIENT
  Age: 71 Year
  Sex: Female
  Weight: 103.8737 kg

DRUGS (1)
  1. MACRODANTIN [Suspect]
     Indication: URINARY TRACT INFECTION
     Dosage: ONCE DAILY PO
     Route: 048
     Dates: start: 20070101, end: 20100101

REACTIONS (3)
  - BRONCHIECTASIS [None]
  - PULMONARY FIBROSIS [None]
  - DRUG HYPERSENSITIVITY [None]
